FAERS Safety Report 14205645 (Version 3)
Quarter: 2018Q1

REPORT INFORMATION
  Report Type: Spontaneous
  Country: IT (occurrence: IT)
  Receive Date: 20171120
  Receipt Date: 20180102
  Transmission Date: 20180508
  Serious: Yes (Other)
  Sender: FDA-Public Use
  Company Number: PHHY2017IT170583

PATIENT
  Age: 24 Year
  Sex: Female

DRUGS (1)
  1. LEVOFLOXACIN. [Suspect]
     Active Substance: LEVOFLOXACIN
     Indication: CYSTITIS HAEMORRHAGIC
     Dosage: 1000 MG, QD
     Route: 048
     Dates: start: 20170925, end: 20170926

REACTIONS (9)
  - Presyncope [Unknown]
  - Abdominal pain upper [Recovering/Resolving]
  - Drug intolerance [Recovering/Resolving]
  - Retching [Recovering/Resolving]
  - Vertigo [Recovering/Resolving]
  - Cold sweat [Recovering/Resolving]
  - Hyperventilation [Unknown]
  - Postural tremor [Recovering/Resolving]
  - Tachypnoea [Unknown]

NARRATIVE: CASE EVENT DATE: 20170929
